FAERS Safety Report 5342025-8 (Version None)
Quarter: 2007Q2

REPORT INFORMATION
  Report Type: 
  Country: None (occurrence: None)
  Receive Date: 20070601
  Receipt Date: 20070525
  Transmission Date: 20071010
  Serious: Yes (Other)
  Sender: FDA-Public Use
  Company Number: US-AVENTIS-200710317US

PATIENT
  Age: 70 Year
  Sex: Female

DRUGS (12)
  1. LANTUS [Suspect]
     Dosage: DOSE: UNK
     Dates: start: 20061101
  2. LANTUS [Suspect]
     Route: 051
  3. OPTICLIK (INSULIN INJECTION PEN) [Suspect]
     Dates: start: 20061101
  4. METFORMIN HCL [Concomitant]
     Dosage: DOSE: UNK
  5. GLYBURIDE [Concomitant]
     Dosage: DOSE: UNK
  6. WARFARIN SODIUM [Concomitant]
     Dosage: DOSE: UNK
  7. GABAPENTIN [Concomitant]
     Dosage: DOSE: UNK
  8. FUROSEMIDE [Concomitant]
     Dosage: DOSE: UNK
  9. ZOLOFT [Concomitant]
     Dosage: DOSE: UNK
  10. TOPROL-XL [Concomitant]
     Dosage: DOSE: UNK
  11. LISINOPRIL [Concomitant]
     Dosage: DOSE: UNK
  12. VYTORIN [Concomitant]
     Dosage: DOSE: UNK

REACTIONS (4)
  - BLOOD GLUCOSE INCREASED [None]
  - DRUG INEFFECTIVE [None]
  - EXPIRED DRUG ADMINISTERED [None]
  - HYPNOPOMPIC HALLUCINATION [None]
